FAERS Safety Report 5646754-8 (Version None)
Quarter: 2008Q1

REPORT INFORMATION
  Report Type: 
  Country: None (occurrence: None)
  Receive Date: 20080303
  Receipt Date: 20080220
  Transmission Date: 20080703
  Serious: Yes (Other)
  Sender: FDA-Public Use
  Company Number: JP-ROCHE-542735

PATIENT
  Age: 10 Year
  Sex: Male
  Weight: 34 kg

DRUGS (5)
  1. TAMIFLU [Suspect]
     Route: 048
     Dates: start: 20071223, end: 20071223
  2. TAVEGYL [Concomitant]
     Route: 048
     Dates: start: 20071223, end: 20071228
  3. MEDICON [Concomitant]
     Route: 048
     Dates: start: 20071223, end: 20071228
  4. MUCODYNE [Concomitant]
     Route: 048
     Dates: start: 20071223, end: 20071228
  5. CALONAL [Concomitant]
     Dosage: FORM: FINE GRANULES, TAKEN AS NEEDED
     Route: 048
     Dates: start: 20071223, end: 20071228

REACTIONS (2)
  - ABNORMAL BEHAVIOUR [None]
  - HALLUCINATION, VISUAL [None]
